FAERS Safety Report 17198808 (Version 1)
Quarter: 2019Q4

REPORT INFORMATION
  Report Type: Spontaneous
  Country: US (occurrence: US)
  Receive Date: 20191203
  Receipt Date: 20191203
  Transmission Date: 20200122
  Serious: No
  Sender: FDA-Public Use
  Company Number: None

PATIENT
  Age: 78 Year

DRUGS (1)
  1. INGREZZA [Suspect]
     Active Substance: VALBENAZINE
     Indication: TARDIVE DYSKINESIA
     Route: 048
     Dates: start: 20190923, end: 20191114

REACTIONS (6)
  - Dyspnoea [None]
  - Arthralgia [None]
  - Dizziness [None]
  - Palpitations [None]
  - Restlessness [None]
  - Pollakiuria [None]

NARRATIVE: CASE EVENT DATE: 20191114
